FAERS Safety Report 8555312-7 (Version None)
Quarter: 2012Q3

REPORT INFORMATION
  Report Type: 
  Country: None (occurrence: None)
  Receive Date: 20120731
  Receipt Date: 20120704
  Transmission Date: 20120928
  Serious: Yes (Other)
  Sender: FDA-Public Use
  Company Number: PHHY2012DE038741

PATIENT
  Sex: Female

DRUGS (5)
  1. GILENYA [Suspect]
     Indication: MULTIPLE SCLEROSIS
     Dosage: 0.5 MG, QD
     Route: 048
     Dates: start: 20110407, end: 20120419
  2. BACLOFEN [Concomitant]
     Indication: MUSCLE SPASTICITY
     Dosage: 1 DF, QD
     Route: 048
     Dates: start: 20051110
  3. MICTONORM [Concomitant]
     Dosage: 30 UKN, TID
     Dates: start: 20051110
  4. LISINOPRIL [Concomitant]
     Dosage: 5 MG, UNK
     Dates: start: 20110321
  5. OPIPRAMOL [Concomitant]
     Dosage: 100 UKN, UNK
     Dates: start: 20051110

REACTIONS (8)
  - VISION BLURRED [None]
  - GLAUCOMA [None]
  - VISUAL FIELD DEFECT [None]
  - OCULAR HYPERAEMIA [None]
  - HEADACHE [None]
  - EYE PAIN [None]
  - COLOUR BLINDNESS ACQUIRED [None]
  - INTRAOCULAR PRESSURE INCREASED [None]
